FAERS Safety Report 21810049 (Version 2)
Quarter: 2023Q1

REPORT INFORMATION
  Report Type: Report from Study
  Country: US (occurrence: US)
  Receive Date: 20230103
  Receipt Date: 20230109
  Transmission Date: 20230418
  Serious: Yes (Other)
  Sender: FDA-Public Use
  Company Number: US-UCBSA-2023000169

PATIENT
  Age: 17 Year
  Sex: Male
  Weight: 93 kg

DRUGS (3)
  1. FINTEPLA [Suspect]
     Active Substance: FENFLURAMINE
     Indication: Severe myoclonic epilepsy of infancy
     Dosage: 20.9MG/KG
     Route: 048
     Dates: start: 20190630
  2. FINTEPLA [Suspect]
     Active Substance: FENFLURAMINE
     Dosage: 21MG/KG
     Route: 048
     Dates: start: 201906
  3. FINTEPLA [Suspect]
     Active Substance: FENFLURAMINE
     Dosage: 21.12MG/KG
     Route: 048
     Dates: start: 20201202

REACTIONS (1)
  - Left ventricular dysfunction [Not Recovered/Not Resolved]

NARRATIVE: CASE EVENT DATE: 20221123
